FAERS Safety Report 9282938 (Version 2)
Quarter: 2013Q2

REPORT INFORMATION
  Report Type: Spontaneous
  Country: GB (occurrence: None)
  Receive Date: 20130503
  Receipt Date: 20130514
  Transmission Date: 20140414
  Serious: Yes (Hospitalization)
  Sender: FDA-Public Use
  Company Number: 2013035652

PATIENT
  Age: 65 Year
  Sex: Male

DRUGS (4)
  1. DESMOPRESSIN [Suspect]
     Indication: NOCTURIA
     Route: 045
     Dates: start: 2010, end: 201304
  2. ZOLADEX (GOSERELIN ACETATE) [Concomitant]
  3. PLAIN ANTIANDROGENS (ANTIANDROGENS) [Concomitant]
  4. MORPHINE SULFATE (MORPHINE SULFATE) INJECTION [Concomitant]

REACTIONS (2)
  - Hyponatraemia [None]
  - Off label use [None]
